FAERS Safety Report 24908340 (Version 1)
Quarter: 2025Q1

REPORT INFORMATION
  Report Type: Other
  Country: KR (occurrence: KR)
  Receive Date: 20250131
  Receipt Date: 20250131
  Transmission Date: 20250409
  Serious: Yes (Other)
  Sender: ADAPTIS PHARMA INDIA
  Company Number: KR-Adaptis Pharma Private Limited-2170182

PATIENT
  Age: 28 Year
  Sex: Male

DRUGS (3)
  1. LEVETIRACETAM [Suspect]
     Active Substance: LEVETIRACETAM
     Indication: Neurocysticercosis
  2. PRAZIQUANTEL [Concomitant]
     Active Substance: PRAZIQUANTEL
  3. PREDNISOLONE [Concomitant]
     Active Substance: PREDNISOLONE

REACTIONS (2)
  - Neurocysticercosis [Not Recovered/Not Resolved]
  - Condition aggravated [Not Recovered/Not Resolved]
